FAERS Safety Report 8506838-3 (Version None)
Quarter: 2012Q3

REPORT INFORMATION
  Report Type: 
  Country: None (occurrence: None)
  Receive Date: 20120712
  Receipt Date: 20120710
  Transmission Date: 20120928
  Serious: Yes (Other)
  Sender: FDA-Public Use
  Company Number: US-PFIZER INC-2012165850

PATIENT
  Sex: Male
  Weight: 83.447 kg

DRUGS (6)
  1. ASPIRIN [Concomitant]
     Dosage: UNK
  2. CHANTIX [Suspect]
     Indication: SMOKING CESSATION THERAPY
     Dosage: 0.5 MG, 1X/DAY
     Route: 048
     Dates: start: 20100101, end: 20100101
  3. CHANTIX [Suspect]
     Dosage: 0.5 MG, 1X/DAY
     Route: 048
     Dates: start: 20120703
  4. PLAVIX [Concomitant]
     Indication: CARDIAC DISORDER
     Dosage: UNK
  5. LOSARTAN [Concomitant]
     Dosage: 50 MG, UNK
  6. CARVEDILOL [Concomitant]
     Dosage: 12.5 MG, UNK

REACTIONS (1)
  - COLONIC POLYP [None]
